FAERS Safety Report 5870631-0 (Version None)
Quarter: 2008Q3

REPORT INFORMATION
  Report Type: 
  Country: None (occurrence: None)
  Receive Date: 20080904
  Receipt Date: 20080901
  Transmission Date: 20090109
  Serious: Yes (Hospitalization)
  Sender: FDA-Public Use
  Company Number: B0535547A

PATIENT
  Age: 34 Year
  Sex: Female

DRUGS (10)
  1. ZOFRAN [Suspect]
     Indication: DRUG USE FOR UNKNOWN INDICATION
     Route: 065
  2. ZOVIRAX [Suspect]
     Indication: DRUG USE FOR UNKNOWN INDICATION
     Route: 065
  3. POSACONAZOLE [Concomitant]
     Indication: HEPATOSPLENIC CANDIDIASIS
     Dosage: 400MG TWICE PER DAY
     Route: 048
     Dates: start: 20071019, end: 20080125
  4. PANTOPRAZOLE SODIUM [Concomitant]
     Route: 065
  5. VOGALENE [Concomitant]
     Route: 065
  6. KALEORID [Concomitant]
     Dosage: 750MG PER DAY
     Route: 065
  7. DEXAMETHASONE TAB [Concomitant]
     Route: 065
  8. ALLOPURINOL [Concomitant]
     Route: 065
  9. CYTARABINE [Concomitant]
     Route: 065
  10. ETOPOSID [Concomitant]
     Route: 065

REACTIONS (1)
  - SINOATRIAL BLOCK [None]
